FAERS Safety Report 7379670-4 (Version None)
Quarter: 2011Q1

REPORT INFORMATION
  Report Type: 
  Country: None (occurrence: None)
  Receive Date: 20110329
  Receipt Date: 20110324
  Transmission Date: 20110831
  Serious: No
  Sender: FDA-Public Use
  Company Number: US-PFIZER INC-2011065981

PATIENT
  Sex: Male
  Weight: 168 kg

DRUGS (3)
  1. ASENAPINE [Concomitant]
     Indication: BIPOLAR DISORDER
     Dosage: 10 MG, UNK
  2. LISINOPRIL AND HYDROCHLOROTHIAZIDE [Concomitant]
     Indication: HYPERTENSION
     Dosage: 20/12.5
  3. PRISTIQ [Suspect]
     Indication: DEPRESSION
     Dosage: 50 MG, 1X/DAY
     Route: 048
     Dates: start: 20110201

REACTIONS (1)
  - DRUG INEFFECTIVE [None]
